FAERS Safety Report 14314687 (Version 1)
Quarter: 2017Q4

REPORT INFORMATION
  Report Type: Report from Study
  Country: US (occurrence: US)
  Receive Date: 20171221
  Receipt Date: 20171221
  Transmission Date: 20180321
  Serious: Yes (Other)
  Sender: FDA-Public Use
  Company Number: PHHO2017US017010

PATIENT
  Age: 77 Year
  Sex: Male
  Weight: 86.4 kg

DRUGS (7)
  1. SYNTHROID [Concomitant]
     Active Substance: LEVOTHYROXINE SODIUM
     Indication: PRODUCT USED FOR UNKNOWN INDICATION
     Dosage: 175 UG, QD
     Route: 065
  2. LEVONOX [Concomitant]
     Active Substance: ENOXAPARIN
     Indication: PRODUCT USED FOR UNKNOWN INDICATION
     Dosage: 90 MG, Q12H
     Route: 058
  3. GSK1120212 [Suspect]
     Active Substance: TRAMETINIB
     Indication: PAPILLARY THYROID CANCER
     Dosage: 2 MG, QD
     Route: 048
     Dates: start: 20171120
  4. FINASTERIDE. [Concomitant]
     Active Substance: FINASTERIDE
     Indication: PRODUCT USED FOR UNKNOWN INDICATION
     Dosage: 5 MG, QD
     Route: 065
  5. TERAZOSIN [Concomitant]
     Active Substance: TERAZOSIN\TERAZOSIN HYDROCHLORIDE
     Indication: PRODUCT USED FOR UNKNOWN INDICATION
     Dosage: 2 MG, UNK AT BED TIME
     Route: 065
  6. VITAMIN D [Concomitant]
     Active Substance: CHOLECALCIFEROL
     Indication: PRODUCT USED FOR UNKNOWN INDICATION
     Dosage: 2000 IU, QD
     Route: 065
  7. GSK2118436 [Suspect]
     Active Substance: DABRAFENIB
     Indication: PAPILLARY THYROID CANCER
     Dosage: 150 MG, BID
     Route: 048
     Dates: start: 20171102

REACTIONS (3)
  - Tachycardia [Unknown]
  - Hypotension [Unknown]
  - Pain in extremity [Unknown]

NARRATIVE: CASE EVENT DATE: 20171214
